FAERS Safety Report 6318435-9 (Version None)
Quarter: 2009Q3

REPORT INFORMATION
  Report Type: 
  Country: None (occurrence: None)
  Receive Date: 20090821
  Receipt Date: 20090810
  Transmission Date: 20100115
  Serious: Yes (Hospitalization, Other)
  Sender: FDA-Public Use
  Company Number: TW-B.I. PHARMACEUTICALS,INC./RIDGEFIELD-2009-DE-05525BY

PATIENT
  Age: 66 Year
  Sex: Female

DRUGS (12)
  1. TELMISARTAN [Suspect]
     Indication: HYPERTENSION
     Route: 048
     Dates: end: 20090613
  2. IOPAMIDOL [Suspect]
     Indication: PERCUTANEOUS CORONARY INTERVENTION
     Route: 013
     Dates: start: 20090608, end: 20090608
  3. IOPAMIDOL [Suspect]
     Indication: ACUTE MYOCARDIAL INFARCTION
  4. OXYGEN [Concomitant]
     Indication: ACUTE MYOCARDIAL INFARCTION
     Route: 055
     Dates: start: 20090606
  5. HEPARIN [Concomitant]
     Indication: ACUTE MYOCARDIAL INFARCTION
     Route: 042
     Dates: start: 20090606
  6. NITROGLYCERIN [Concomitant]
     Indication: ACUTE MYOCARDIAL INFARCTION
     Dates: start: 20090606
  7. FUROSEMIDE [Concomitant]
     Indication: ACUTE MYOCARDIAL INFARCTION
     Dates: start: 20090606
  8. ASPIRIN [Concomitant]
     Indication: ACUTE MYOCARDIAL INFARCTION
     Route: 048
     Dates: start: 20090606
  9. CLOPIDOGREL [Concomitant]
     Indication: ACUTE MYOCARDIAL INFARCTION
     Dates: start: 20090608
  10. GLIMEPIRIDE [Concomitant]
     Indication: DIABETES MELLITUS
  11. METFORMIN HCL [Concomitant]
     Indication: DIABETES MELLITUS
  12. METOPROLOL [Concomitant]
     Indication: HYPERTENSION
     Route: 048
     Dates: end: 20090613

REACTIONS (2)
  - NEPHROPATHY TOXIC [None]
  - RENAL FAILURE ACUTE [None]
